FAERS Safety Report 15885431 (Version 1)
Quarter: 2019Q1

REPORT INFORMATION
  Report Type: Report from Study
  Country: CA (occurrence: CA)
  Receive Date: 20190129
  Receipt Date: 20190129
  Transmission Date: 20190417
  Serious: Yes (Other)
  Sender: FDA-Public Use
  Company Number: PHHY2019CA018262

PATIENT
  Sex: Female

DRUGS (1)
  1. AZOPT [Suspect]
     Active Substance: BRINZOLAMIDE
     Indication: PRODUCT USED FOR UNKNOWN INDICATION
     Route: 065

REACTIONS (11)
  - Rheumatoid arthritis [Unknown]
  - Retinal degeneration [Unknown]
  - Asthenia [Unknown]
  - Glaucoma [Unknown]
  - Intraocular pressure increased [Unknown]
  - Limb discomfort [Unknown]
  - Optic nerve injury [Unknown]
  - Blindness [Unknown]
  - Thyroid disorder [Unknown]
  - Emphysema [Unknown]
  - Eye disorder [Unknown]
